FAERS Safety Report 7638557-X (Version None)
Quarter: 2011Q3

REPORT INFORMATION
  Report Type: 
  Country: None (occurrence: None)
  Receive Date: 20110727
  Receipt Date: 20110723
  Transmission Date: 20111222
  Serious: Yes (Life-Threatening, Hospitalization, Other)
  Sender: FDA-Public Use
  Company Number: PHHY2011CA64255

PATIENT
  Sex: Male

DRUGS (4)
  1. HALDOL [Concomitant]
     Dosage: 80 MG,
  2. CLOZAPINE [Suspect]
     Dosage: 300 MG, BEDTIME
     Route: 048
  3. COGENTIN [Concomitant]
     Dosage: 30 MG,
  4. CLOZAPINE [Suspect]
     Indication: SCHIZOPHRENIA
     Dosage: 150 MG, BID
     Route: 048
     Dates: start: 20040702

REACTIONS (4)
  - WHITE BLOOD CELL COUNT INCREASED [None]
  - OVERDOSE [None]
  - COMA SCALE ABNORMAL [None]
  - NEUTROPHIL COUNT INCREASED [None]
